FAERS Safety Report 6035285-1 (Version None)
Quarter: 2009Q1

REPORT INFORMATION
  Report Type: 
  Country: None (occurrence: None)
  Receive Date: 20090109
  Receipt Date: 20090102
  Transmission Date: 20090719
  Serious: Yes (Other)
  Sender: FDA-Public Use
  Company Number: FABR-1000583

PATIENT
  Age: 38 Year
  Sex: Female
  Weight: 65 kg

DRUGS (1)
  1. FABRAZYME [Suspect]
     Indication: FABRY'S DISEASE
     Dosage: 65 MG, Q2W, INTRAVENOUS
     Route: 042
     Dates: start: 20070323

REACTIONS (6)
  - INFLUENZA [None]
  - KIDNEY TRANSPLANT REJECTION [None]
  - PYELONEPHRITIS [None]
  - RENAL DISORDER [None]
  - RENAL FAILURE [None]
  - WEIGHT INCREASED [None]
